FAERS Safety Report 11952626 (Version 1)
Quarter: 2016Q1

REPORT INFORMATION
  Report Type: Report from Study
  Country: UY (occurrence: UY)
  Receive Date: 20160125
  Receipt Date: 20160125
  Transmission Date: 20160526
  Serious: Yes (Hospitalization, Other)
  Sender: FDA-Public Use
  Company Number: UY-ABBVIE-16P-168-1542863-00

PATIENT
  Age: 65 Year
  Sex: Male

DRUGS (1)
  1. ZEMPLAR [Suspect]
     Active Substance: PARICALCITOL
     Indication: HYPERPARATHYROIDISM SECONDARY
     Dosage: NOT REPORTED
     Route: 065
     Dates: start: 20150302, end: 20160119

REACTIONS (1)
  - Renal transplant [Not Recovered/Not Resolved]

NARRATIVE: CASE EVENT DATE: 20160119
